FAERS Safety Report 5757470-6 (Version None)
Quarter: 2008Q2

REPORT INFORMATION
  Report Type: 
  Country: None (occurrence: None)
  Receive Date: 20080603
  Receipt Date: 20080507
  Transmission Date: 20081010
  Serious: No
  Sender: FDA-Public Use
  Company Number: US-BOEHRINGER INGELHEIM GMBH, GERMANY-2008-BP-07226BP

PATIENT
  Age: 55 Year
  Sex: Male

DRUGS (2)
  1. CATAPRES-TTS-1 [Suspect]
  2. NEBIVOLOL HCL [Suspect]

REACTIONS (3)
  - DRUG INTERACTION [None]
  - HEART RATE DECREASED [None]
  - OEDEMA PERIPHERAL [None]
